FAERS Safety Report 21418157 (Version 1)
Quarter: 2022Q4

REPORT INFORMATION
  Report Type: Spontaneous
  Country: US (occurrence: None)
  Receive Date: 20221005
  Receipt Date: 20221005
  Transmission Date: 20230113
  Serious: No
  Sender: FDA-Public Use
  Company Number: None

PATIENT

DRUGS (2)
  1. ILUMYA [Suspect]
     Active Substance: TILDRAKIZUMAB-ASMN
     Route: 058
  2. ILARIS [Suspect]
     Active Substance: CANAKINUMAB
     Route: 058

REACTIONS (2)
  - Product name confusion [None]
  - Product name confusion [None]
